FAERS Safety Report 7210715-8 (Version None)
Quarter: 2011Q1

REPORT INFORMATION
  Report Type: 
  Country: None (occurrence: None)
  Receive Date: 20110105
  Receipt Date: 20101230
  Transmission Date: 20110831
  Serious: No
  Sender: FDA-Public Use
  Company Number: US-PFIZER INC-2010182457

PATIENT
  Sex: Female

DRUGS (2)
  1. ADVIL CONGESTION RELIEF [Suspect]
     Indication: SINUSITIS
     Dosage: 1 TAB, EVERY 4 HRS
     Route: 048
     Dates: start: 20101227
  2. PERCOCET [Concomitant]

REACTIONS (1)
  - DRUG INEFFECTIVE [None]
